FAERS Safety Report 7291506-9 (Version None)
Quarter: 2011Q1

REPORT INFORMATION
  Report Type: 
  Country: None (occurrence: None)
  Receive Date: 20110201
  Receipt Date: 20110126
  Transmission Date: 20110831
  Serious: Yes (Hospitalization)
  Sender: FDA-Public Use
  Company Number: 2009AC000010

PATIENT
  Age: 80 Year
  Sex: Male

DRUGS (31)
  1. TRAVATAN [Concomitant]
  2. WARFARIN [Concomitant]
  3. METOPROLOL [Concomitant]
  4. BENAZEPRIL [Concomitant]
  5. ALPHAGAN [Concomitant]
  6. METFORMIN [Concomitant]
  7. TRICOR [Concomitant]
  8. *SIMVASTATIN [Concomitant]
  9. XOPENEX [Concomitant]
  10. LOTREL [Concomitant]
  11. POTASSIUM [Concomitant]
  12. TERAZOSIN HYDROCHLORIDE [Concomitant]
  13. ENALAPRIL [Concomitant]
  14. ATROVENT [Concomitant]
  15. ALDACTONE [Concomitant]
  16. DIGOXIN [Suspect]
     Dosage: 250 MCG;QD;PO
     Route: 048
     Dates: start: 20080209, end: 20080601
  17. CARTIA XT [Concomitant]
  18. NOVOLIN 70/30 [Concomitant]
  19. DIGOXIN [Suspect]
     Dosage: PO
     Route: 048
     Dates: start: 20060101
  20. CARDIZEM [Concomitant]
  21. SPIRONOLACTONE [Concomitant]
  22. FUROSEMIDE [Concomitant]
  23. VERAPAMIL [Concomitant]
  24. MECLIZINE [Concomitant]
  25. ISOSORBIDE DINITRATE [Concomitant]
  26. ASPIRIN [Concomitant]
  27. ARISTRA [Concomitant]
  28. PRAVASTATIN [Concomitant]
  29. GLUCOPHAGE [Concomitant]
  30. HUMULIN R [Concomitant]
  31. PAVACHOL [Concomitant]

REACTIONS (39)
  - TRICUSPID VALVE INCOMPETENCE [None]
  - CARDIOMEGALY [None]
  - AORTIC VALVE INCOMPETENCE [None]
  - AZOTAEMIA [None]
  - HAEMOPTYSIS [None]
  - AORTIC ANEURYSM [None]
  - ANAEMIA [None]
  - CORONARY ARTERY DISEASE [None]
  - AORTIC ARTERIOSCLEROSIS [None]
  - HYPERTENSION [None]
  - CHOLECYSTECTOMY [None]
  - CONDUCTION DISORDER [None]
  - WEIGHT INCREASED [None]
  - CARDIAC FAILURE CONGESTIVE [None]
  - RENAL FAILURE CHRONIC [None]
  - PULMONARY OEDEMA [None]
  - CONFUSIONAL STATE [None]
  - ABDOMINAL PAIN UPPER [None]
  - EJECTION FRACTION DECREASED [None]
  - MYOCARDIAL INFARCTION [None]
  - ABDOMINAL DISTENSION [None]
  - HYPERCHOLESTEROLAEMIA [None]
  - ANGINA PECTORIS [None]
  - ECONOMIC PROBLEM [None]
  - TREATMENT NONCOMPLIANCE [None]
  - PLEURAL EFFUSION [None]
  - CHILLS [None]
  - MULTIPLE INJURIES [None]
  - LEFT VENTRICULAR HYPERTROPHY [None]
  - ATRIAL FIBRILLATION [None]
  - TYPE 1 DIABETES MELLITUS [None]
  - SICK SINUS SYNDROME [None]
  - CORONARY ANGIOPLASTY [None]
  - MITRAL VALVE INCOMPETENCE [None]
  - DYSKINESIA [None]
  - RESPIRATORY DISORDER [None]
  - CHRONIC OBSTRUCTIVE PULMONARY DISEASE [None]
  - BUNDLE BRANCH BLOCK [None]
  - VENTRICULAR FIBRILLATION [None]
